FAERS Safety Report 8419466-5 (Version None)
Quarter: 2012Q2

REPORT INFORMATION
  Report Type: 
  Country: None (occurrence: None)
  Receive Date: 20120604
  Receipt Date: 20120604
  Transmission Date: 20120825
  Serious: Yes (Other)
  Sender: FDA-Public Use
  Company Number: None

PATIENT
  Age: 41 Year
  Sex: Female
  Weight: 89.8122 kg

DRUGS (1)
  1. LATUDA [Suspect]
     Indication: BIPOLAR II DISORDER
     Dosage: 40MG DAILY IN THE A.M. PO
     Route: 048
     Dates: start: 20120303, end: 20120503

REACTIONS (17)
  - PYREXIA [None]
  - HYPERHIDROSIS [None]
  - FEELING ABNORMAL [None]
  - PAIN [None]
  - PRURITUS GENERALISED [None]
  - MALAISE [None]
  - WEIGHT INCREASED [None]
  - FATIGUE [None]
  - ARTHRALGIA [None]
  - LYMPHADENOPATHY [None]
  - GALACTORRHOEA [None]
  - BREAST ENLARGEMENT [None]
  - CHILLS [None]
  - ASTHENIA [None]
  - ACTIVITIES OF DAILY LIVING IMPAIRED [None]
  - DECREASED APPETITE [None]
  - HEADACHE [None]
